FAERS Safety Report 7450219-0 (Version None)
Quarter: 2011Q2

REPORT INFORMATION
  Report Type: 
  Country: None (occurrence: None)
  Receive Date: 20110428
  Receipt Date: 20110428
  Transmission Date: 20111010
  Serious: Yes (Other)
  Sender: FDA-Public Use
  Company Number: None

PATIENT
  Age: 51 Year
  Sex: Female
  Weight: 64.4108 kg

DRUGS (1)
  1. ACETAMINOPHEN [Suspect]
     Indication: VIRAL INFECTION
     Dosage: 1000 MGS 4 X DAILY PO
     Route: 048
     Dates: start: 20110410, end: 20110419

REACTIONS (1)
  - HEPATIC ENZYME INCREASED [None]
